FAERS Safety Report 22977495 (Version 4)
Quarter: 2023Q4

REPORT INFORMATION
  Report Type: Other
  Country: GB (occurrence: GB)
  Receive Date: 20230925
  Receipt Date: 20231230
  Transmission Date: 20240109
  Serious: No
  Sender: FDA-Public Use
  Company Number: GB-MACLEODS PHARMA EU LTD-MAC2023043524

PATIENT

DRUGS (3)
  1. EMTRICITABINE\TENOFOVIR [Suspect]
     Active Substance: EMTRICITABINE\TENOFOVIR
     Indication: Product used for unknown indication
     Dosage: 1 DOSAGE FORM, QD,(TAB/CAPS, 1 COURSE, PRIOR TO CONCEPTION, EXPOSURE DURING FIRST TRIMESTER)
     Route: 064
  2. ATAZANAVIR [Suspect]
     Active Substance: ATAZANAVIR
     Indication: Product used for unknown indication
     Dosage: 300 MILLIGRAM, QD (1 COURSE, PRIOR TO CONCEPTION, EXPOSURE DURING FIRST TRIMESTER)
     Route: 064
  3. RITONAVIR [Suspect]
     Active Substance: RITONAVIR
     Indication: Product used for unknown indication
     Dosage: 100 MILLIGRAM, QD (1 COURSE, PRIOR TO CONCEPTION, EXPOSURE DURING FIRST TRIMESTER)
     Route: 064

REACTIONS (2)
  - Cardiac murmur [Unknown]
  - Foetal exposure during pregnancy [Recovered/Resolved]

NARRATIVE: CASE EVENT DATE: 20230616
